FAERS Safety Report 20688052 (Version 2)
Quarter: 2022Q2

REPORT INFORMATION
  Report Type: Spontaneous
  Country: AU (occurrence: AU)
  Receive Date: 20220408
  Receipt Date: 20220526
  Transmission Date: 20220721
  Serious: Yes (Death, Other)
  Sender: FDA-Public Use
  Company Number: AU-BRISTOL-MYERS SQUIBB COMPANY-2022-014714

PATIENT
  Age: 62 Year
  Sex: Male

DRUGS (1)
  1. THALOMID [Suspect]
     Active Substance: THALIDOMIDE
     Indication: Plasma cell myeloma
     Dosage: DOSE : CURRENT 100 MG, PREVIOUS N/A;     FREQ : CURRENT DAILY, PREVIOUS N/A
     Route: 065

REACTIONS (2)
  - Death [Fatal]
  - Plasma cell myeloma refractory [Unknown]
